FAERS Safety Report 13578763 (Version 1)
Quarter: 2017Q2

REPORT INFORMATION
  Report Type: Spontaneous
  Country: US (occurrence: US)
  Receive Date: 20170524
  Receipt Date: 20170524
  Transmission Date: 20170830
  Serious: No
  Sender: FDA-Public Use
  Company Number: US-JAZZ-2017-US-002914

PATIENT
  Sex: Female

DRUGS (5)
  1. IRON + VITAMIN C [Concomitant]
     Active Substance: ASCORBIC ACID\IRON
  2. MELATONIN [Concomitant]
     Active Substance: MELATONIN
  3. ADDERALL [Concomitant]
     Active Substance: AMPHETAMINE ASPARTATE\AMPHETAMINE SULFATE\DEXTROAMPHETAMINE SACCHARATE\DEXTROAMPHETAMINE SULFATE
  4. XYREM [Suspect]
     Active Substance: SODIUM OXYBATE
     Indication: NARCOLEPSY
     Dosage: 2.75 G, BID
     Route: 048
     Dates: start: 201702
  5. XYREM [Suspect]
     Active Substance: SODIUM OXYBATE
     Indication: CATAPLEXY
     Dosage: 2.5 G, BID
     Route: 048
     Dates: start: 201701, end: 201702

REACTIONS (2)
  - Initial insomnia [Unknown]
  - Inappropriate schedule of drug administration [Unknown]
